FAERS Safety Report 4502903-6 (Version None)
Quarter: 2004Q4

REPORT INFORMATION
  Report Type: 
  Country: None (occurrence: None)
  Receive Date: 20041112
  Receipt Date: 20041103
  Transmission Date: 20050328
  Serious: Yes (Death)
  Sender: FDA-Public Use
  Company Number: 04H-163-0279735-00

PATIENT
  Age: 75 Year
  Sex: Male

DRUGS (3)
  1. EPINEPHRINE [Suspect]
     Indication: ARTHROPOD STING
     Dosage: 2 ML, ONCE, SUBCUTANEOUS
     Route: 058
  2. DIPHENHYDRAMINE [Concomitant]
  3. DEXAMETHASONE [Concomitant]

REACTIONS (4)
  - CARDIAC ARREST [None]
  - COMA [None]
  - MEDICATION ERROR [None]
  - OVERDOSE [None]
